FAERS Safety Report 22336208 (Version 3)
Quarter: 2023Q2

REPORT INFORMATION
  Report Type: Report from Study
  Country: BE (occurrence: BE)
  Receive Date: 20230518
  Receipt Date: 20230602
  Transmission Date: 20230721
  Serious: Yes (Life-Threatening)
  Sender: FDA-Public Use
  Company Number: BE-ABBVIE-4770740

PATIENT
  Age: 75 Year

DRUGS (12)
  1. CARBIDOPA\LEVODOPA [Suspect]
     Active Substance: CARBIDOPA\LEVODOPA
     Indication: Parkinson^s disease
     Dosage: MD 0.0 ML, CD 1.8 ML/H ED 0.0 ML REMAINS AT 16H
     Route: 050
     Dates: start: 20230306, end: 20230313
  2. CARBIDOPA\LEVODOPA [Suspect]
     Active Substance: CARBIDOPA\LEVODOPA
     Dosage: MD 10.0 ML, CD 2.6 ML/H ED 2.1 ML REMAINS AT 16H
     Route: 050
     Dates: start: 20221121, end: 20221128
  3. CARBIDOPA\LEVODOPA [Suspect]
     Active Substance: CARBIDOPA\LEVODOPA
     Dosage: MD 0.0 ML, CD 1.6ML/H ED 0.0 ML REMAINS AT 16H
     Route: 050
     Dates: start: 20230223, end: 20230306
  4. CARBIDOPA\LEVODOPA [Suspect]
     Active Substance: CARBIDOPA\LEVODOPA
     Dosage: MD 6.0 ML, CD 1.8 ML/H ED 2.1 ML REMAINS AT 16H
     Route: 050
     Dates: start: 20221227, end: 20230112
  5. CARBIDOPA\LEVODOPA [Suspect]
     Active Substance: CARBIDOPA\LEVODOPA
     Route: 050
     Dates: start: 20221107
  6. CARBIDOPA\LEVODOPA [Suspect]
     Active Substance: CARBIDOPA\LEVODOPA
     Dosage: MD 0.0 ML, CD 1.7 ML/H ED 0.0 ML REMAINS AT 16H
     Route: 050
     Dates: start: 20230313, end: 20230511
  7. CARBIDOPA\LEVODOPA [Suspect]
     Active Substance: CARBIDOPA\LEVODOPA
     Dosage: MD 10.0  ML, CD 2.0 ML/H, ED 2.1 ML REMAINS AT 16H
     Route: 050
     Dates: start: 20221213, end: 20221227
  8. CARBIDOPA\LEVODOPA [Suspect]
     Active Substance: CARBIDOPA\LEVODOPA
     Dosage: MD 6.0 ML, CD 1.8 ML/H (AM), CD 1.5 ML/H (PM) ED 2.1 ML, REMAINS AT 16H
     Route: 050
     Dates: start: 20230112, end: 20230223
  9. CARBIDOPA\LEVODOPA [Suspect]
     Active Substance: CARBIDOPA\LEVODOPA
     Dosage: MD 0.0 ML, CD 2.0 ML/H ED 1.5 ML REMAINS AT 16H
     Route: 050
     Dates: start: 20230511, end: 20230523
  10. CARBIDOPA\LEVODOPA [Suspect]
     Active Substance: CARBIDOPA\LEVODOPA
     Dosage: MD 10.0 ML, CD 2.8 ML/H ED 2.1 ML REMAINS AT 16H
     Route: 050
     Dates: start: 20221128, end: 20221213
  11. CARBIDOPA\LEVODOPA [Suspect]
     Active Substance: CARBIDOPA\LEVODOPA
     Dosage: MD 0.0, CD 3.0 ML/H ED 1.5 ML, REMAINS AT 16H
     Route: 050
     Dates: start: 20230523, end: 20230601
  12. CARBIDOPA\LEVODOPA [Suspect]
     Active Substance: CARBIDOPA\LEVODOPA
     Dosage: MD 2.0 ML, CD 3.0 ML/H ED 1.5 ML, REMAINS AT 16H
     Dates: start: 20230601

REACTIONS (3)
  - Choking [Recovered/Resolved]
  - On and off phenomenon [Not Recovered/Not Resolved]
  - Tremor [Unknown]

NARRATIVE: CASE EVENT DATE: 20230514
